FAERS Safety Report 23343504 (Version 2)
Quarter: 2024Q1

REPORT INFORMATION
  Report Type: Spontaneous
  Country: US (occurrence: US)
  Receive Date: 20231227
  Receipt Date: 20240221
  Transmission Date: 20240409
  Serious: No
  Sender: FDA-Public Use
  Company Number: US-PFIZER INC-202300447972

PATIENT
  Age: 66 Year
  Sex: Female
  Weight: 74.83 kg

DRUGS (3)
  1. PAXLOVID [Suspect]
     Active Substance: NIRMATRELVIR\RITONAVIR
     Indication: COVID-19 treatment
     Dosage: 150/100 MG
     Dates: start: 20231205, end: 20231210
  2. XYLOMETAZOLINE HYDROCHLORIDE [Concomitant]
     Active Substance: XYLOMETAZOLINE HYDROCHLORIDE
     Dosage: UNK
     Dates: start: 20231204, end: 20231225
  3. ADVIL [Concomitant]
     Active Substance: IBUPROFEN
     Dosage: UNK
     Dates: start: 20231204, end: 20231225

REACTIONS (2)
  - COVID-19 [Recovered/Resolved]
  - Disease recurrence [Recovered/Resolved]

NARRATIVE: CASE EVENT DATE: 20231213
